FAERS Safety Report 13842070 (Version 1)
Quarter: 2017Q3

REPORT INFORMATION
  Report Type: Report from Study
  Country: US (occurrence: US)
  Receive Date: 20170807
  Receipt Date: 20170807
  Transmission Date: 20171127
  Serious: Yes (Hospitalization, Other)
  Sender: FDA-Public Use
  Company Number: US-BRISTOL-MYERS SQUIBB COMPANY-BMS-2017-068814

PATIENT
  Age: 76 Year
  Sex: Male
  Weight: 98.8 kg

DRUGS (3)
  1. BLINDED PLACEBO [Suspect]
     Active Substance: INVESTIGATIONAL PRODUCT
     Indication: SQUAMOUS CELL CARCINOMA OF HEAD AND NECK
     Dosage: UNK
     Route: 065
     Dates: start: 20170522
  2. BLINDED NIVOLUMAB [Suspect]
     Active Substance: NIVOLUMAB
     Indication: SQUAMOUS CELL CARCINOMA OF HEAD AND NECK
     Dosage: UNK
     Route: 065
     Dates: start: 20170522
  3. CISPLATIN. [Suspect]
     Active Substance: CISPLATIN
     Indication: SQUAMOUS CELL CARCINOMA OF HEAD AND NECK
     Dosage: UNK
     Route: 065
     Dates: start: 20170522

REACTIONS (4)
  - Sinus tachycardia [Recovered/Resolved]
  - Febrile neutropenia [Recovered/Resolved]
  - Hypertension [Recovered/Resolved]
  - Lung infection [Not Recovered/Not Resolved]

NARRATIVE: CASE EVENT DATE: 20170628
